FAERS Safety Report 23648298 (Version 1)
Quarter: 2024Q1

REPORT INFORMATION
  Report Type: Spontaneous
  Country: US (occurrence: None)
  Receive Date: 20240318
  Receipt Date: 20240318
  Transmission Date: 20240409
  Serious: Yes (unspecified)
  Sender: FDA-Public Use
  Company Number: None

PATIENT
  Age: 51 Year
  Sex: Female

DRUGS (1)
  1. ADEMPAS [Suspect]
     Active Substance: RIOCIGUAT
     Indication: Pulmonary hypertension
     Dosage: FREQUENCY : TWICE A DAY;?
     Route: 048
     Dates: end: 20240310

REACTIONS (7)
  - Diarrhoea [None]
  - Vomiting [None]
  - Nausea [None]
  - Abdominal distension [None]
  - Swelling [None]
  - Dizziness [None]
  - Dehydration [None]

NARRATIVE: CASE EVENT DATE: 20240209
